FAERS Safety Report 14775692 (Version 5)
Quarter: 2020Q2

REPORT INFORMATION
  Report Type: Spontaneous
  Country: US (occurrence: US)
  Receive Date: 20180418
  Receipt Date: 20200604
  Transmission Date: 20200713
  Serious: Yes (Hospitalization, Other)
  Sender: FDA-Public Use
  Company Number: US-ASTRAZENECA-2018SE46574

PATIENT
  Age: 45 Year
  Sex: Female
  Weight: 93 kg

DRUGS (55)
  1. PRILOSEC [Suspect]
     Active Substance: OMEPRAZOLE MAGNESIUM
     Indication: DYSPEPSIA
     Route: 048
     Dates: start: 2003, end: 2012
  2. FLUTICASONE. [Concomitant]
     Active Substance: FLUTICASONE
  3. PRILOSEC [Suspect]
     Active Substance: OMEPRAZOLE MAGNESIUM
     Indication: DYSPEPSIA
     Dosage: GENERIC
     Route: 065
     Dates: start: 20120823, end: 20151106
  4. PROTONIX [Suspect]
     Active Substance: PANTOPRAZOLE SODIUM
     Route: 065
  5. HUMULIN NOS [Concomitant]
     Active Substance: INSULIN HUMAN
  6. LOPRESSOR [Concomitant]
     Active Substance: METOPROLOL TARTRATE
  7. APRESOLINE HYDROCHLORIDE [Concomitant]
     Active Substance: HYDRALAZINE HYDROCHLORIDE
  8. BACITRACIN. [Concomitant]
     Active Substance: BACITRACIN
  9. HYDROQUINONE. [Concomitant]
     Active Substance: HYDROQUINONE
  10. ZESTRIL [Concomitant]
     Active Substance: LISINOPRIL
  11. CRESTOR [Concomitant]
     Active Substance: ROSUVASTATIN CALCIUM
  12. COREG [Concomitant]
     Active Substance: CARVEDILOL
  13. AMLODIPINE [Concomitant]
     Active Substance: AMLODIPINE BESYLATE
  14. HYDRALAZINE [Concomitant]
     Active Substance: HYDRALAZINE HYDROCHLORIDE
  15. PATANOL [Concomitant]
     Active Substance: OLOPATADINE HYDROCHLORIDE
  16. NEXIUM [Suspect]
     Active Substance: ESOMEPRAZOLE MAGNESIUM
     Route: 048
  17. NEXIUM 24HR [Suspect]
     Active Substance: ESOMEPRAZOLE MAGNESIUM
     Route: 048
  18. GLUCOPHAGE [Concomitant]
     Active Substance: METFORMIN HYDROCHLORIDE
  19. SIMETHICONE (DIMETHICONE) [Concomitant]
     Active Substance: DIMETHICONE
  20. RANITIDINE. [Concomitant]
     Active Substance: RANITIDINE
     Dosage: GENERIC
  21. ALBUTEROL. [Concomitant]
     Active Substance: ALBUTEROL
  22. MELOXICAM. [Concomitant]
     Active Substance: MELOXICAM
  23. PRILOSEC OTC [Suspect]
     Active Substance: OMEPRAZOLE MAGNESIUM
     Indication: DYSPEPSIA
     Route: 048
     Dates: start: 2002, end: 2015
  24. ACETAMINOPHEN. [Concomitant]
     Active Substance: ACETAMINOPHEN
     Indication: PAIN
  25. CARVEDILOL. [Concomitant]
     Active Substance: CARVEDILOL
  26. METFORMIN [Concomitant]
     Active Substance: METFORMIN HYDROCHLORIDE
  27. AMOXICILLIN. [Concomitant]
     Active Substance: AMOXICILLIN
  28. PRILOSEC [Suspect]
     Active Substance: OMEPRAZOLE MAGNESIUM
     Indication: DYSPEPSIA
     Route: 048
     Dates: start: 2003, end: 2012
  29. PRILOSEC [Suspect]
     Active Substance: OMEPRAZOLE MAGNESIUM
     Indication: DYSPEPSIA
     Dosage: GENERIC
     Route: 048
     Dates: start: 20150730
  30. DEXILANT [Suspect]
     Active Substance: DEXLANSOPRAZOLE
     Route: 065
  31. TYLENOL [Concomitant]
     Active Substance: ACETAMINOPHEN
  32. COLACE [Concomitant]
     Active Substance: DOCUSATE SODIUM
  33. ALLOPURINOL. [Concomitant]
     Active Substance: ALLOPURINOL
  34. ACETAMINOPHEN. [Concomitant]
     Active Substance: ACETAMINOPHEN
     Indication: HEADACHE
  35. BENADRYL [Concomitant]
     Active Substance: DIPHENHYDRAMINE HYDROCHLORIDE
     Indication: HYPERSENSITIVITY
  36. DOCUSATE SODIUM. [Concomitant]
     Active Substance: DOCUSATE SODIUM
  37. LISINOPRIL. [Concomitant]
     Active Substance: LISINOPRIL
  38. DIFLUCAN [Concomitant]
     Active Substance: FLUCONAZOLE
  39. PRILOSEC [Suspect]
     Active Substance: OMEPRAZOLE MAGNESIUM
     Indication: DYSPEPSIA
     Route: 048
     Dates: start: 2002, end: 2015
  40. PREVACID [Suspect]
     Active Substance: LANSOPRAZOLE
     Route: 065
  41. PREVACID 24 HR [Suspect]
     Active Substance: LANSOPRAZOLE
     Route: 065
  42. LANTUS [Concomitant]
     Active Substance: INSULIN GLARGINE
  43. LORATADINE. [Concomitant]
     Active Substance: LORATADINE
  44. ASPIRIN. [Concomitant]
     Active Substance: ASPIRIN
     Indication: PULMONARY VASCULAR DISORDER
  45. CHLORTHALIDONE. [Concomitant]
     Active Substance: CHLORTHALIDONE
  46. FERROUS SULFATE. [Concomitant]
     Active Substance: FERROUS SULFATE
  47. METOPROLOL. [Concomitant]
     Active Substance: METOPROLOL
  48. THALIDONE [Concomitant]
  49. PRILOSEC OTC [Suspect]
     Active Substance: OMEPRAZOLE MAGNESIUM
     Indication: DYSPEPSIA
     Route: 048
     Dates: start: 2003, end: 2012
  50. DIFLUCAN [Concomitant]
     Active Substance: FLUCONAZOLE
  51. BACTROBAN [Concomitant]
     Active Substance: MUPIROCIN\MUPIROCIN CALCIUM
  52. ROSUVASTATIN. [Concomitant]
     Active Substance: ROSUVASTATIN
  53. CETIRIZINE [Concomitant]
     Active Substance: CETIRIZINE HYDROCHLORIDE
  54. MELOXICAM. [Concomitant]
     Active Substance: MELOXICAM
  55. POLYETHYLENE GLYCOL [Concomitant]
     Active Substance: POLYETHYLENE GLYCOLS

REACTIONS (7)
  - Nephropathy [Unknown]
  - Tubulointerstitial nephritis [Unknown]
  - Dyspepsia [Unknown]
  - Renal failure [Unknown]
  - Chronic kidney disease [Not Recovered/Not Resolved]
  - Acute kidney injury [Unknown]
  - End stage renal disease [Unknown]

NARRATIVE: CASE EVENT DATE: 2005
